FAERS Safety Report 9844860 (Version 1)
Quarter: 2014Q1

REPORT INFORMATION
  Report Type: Spontaneous
  Country: US (occurrence: None)
  Receive Date: 20140122
  Receipt Date: 20140122
  Transmission Date: 20141002
  Serious: Yes (Death)
  Sender: FDA-Public Use
  Company Number: B0959232A

PATIENT
  Age: 25 Year
  Sex: Female

DRUGS (6)
  1. RANITIDINE HYDROCHLORIDE [Suspect]
     Route: 048
  2. IRON [Suspect]
  3. DIPHENHYDRAMINE [Suspect]
     Route: 048
  4. LORATADINE [Suspect]
     Route: 048
  5. IBUPROFEN [Suspect]
     Route: 048
  6. PARACETAMOL [Suspect]
     Route: 048

REACTIONS (1)
  - Completed suicide [None]
